FAERS Safety Report 9495356 (Version 3)
Quarter: 2014Q3

REPORT INFORMATION
  Report Type: Spontaneous
  Country: JP (occurrence: JP)
  Receive Date: 20130903
  Receipt Date: 20140909
  Transmission Date: 20150326
  Serious: Yes (Disabling)
  Sender: FDA-Public Use
  Company Number: JP-GLAXOSMITHKLINE-B0895354A

PATIENT
  Age: 68 Year
  Sex: Female
  Weight: 56 kg

DRUGS (17)
  1. ONCOVIN [Suspect]
     Active Substance: VINCRISTINE SULFATE
     Indication: PRODUCT USED FOR UNKNOWN INDICATION
     Dosage: 2MG PER DAY
     Route: 042
     Dates: start: 20130716, end: 20130716
  2. ARRANON [Suspect]
     Active Substance: NELARABINE
     Indication: T-CELL TYPE ACUTE LEUKAEMIA
     Dosage: 1600MG ALTERNATE DAYS
     Route: 042
     Dates: start: 20130819, end: 20130823
  3. ENDOXAN [Concomitant]
     Active Substance: CYCLOPHOSPHAMIDE
     Indication: T-CELL TYPE ACUTE LEUKAEMIA
     Dosage: 1300MG PER DAY
     Dates: start: 20130409, end: 20130409
  4. CYLOCIDE [Suspect]
     Active Substance: CYTARABINE
     Indication: T-CELL TYPE ACUTE LEUKAEMIA
     Dosage: 120MG PER DAY
     Route: 042
     Dates: start: 20130416, end: 20130419
  5. ONCOVIN [Suspect]
     Active Substance: VINCRISTINE SULFATE
     Indication: PRODUCT USED FOR UNKNOWN INDICATION
     Dosage: 2MG PER DAY
     Route: 042
     Dates: start: 20130730, end: 20130730
  6. CYLOCIDE [Suspect]
     Active Substance: CYTARABINE
     Indication: T-CELL TYPE ACUTE LEUKAEMIA
     Dosage: 3200MG PER DAY
     Route: 042
     Dates: start: 20130520, end: 20130521
  7. PREDONINE [Concomitant]
     Active Substance: PREDNISOLONE\PREDNISOLONE ACETATE\PREDNISOLONE SODIUM SUCCINATE
     Indication: RASH
     Route: 048
     Dates: start: 20130402, end: 20130412
  8. ONCOVIN [Suspect]
     Active Substance: VINCRISTINE SULFATE
     Indication: PRODUCT USED FOR UNKNOWN INDICATION
     Route: 042
     Dates: start: 20130304, end: 20130304
  9. CYLOCIDE [Suspect]
     Active Substance: CYTARABINE
     Indication: T-CELL TYPE ACUTE LEUKAEMIA
     Dosage: 120MG PER DAY
     Route: 042
     Dates: start: 20130409, end: 20130413
  10. CYLOCIDE [Suspect]
     Active Substance: CYTARABINE
     Indication: T-CELL TYPE ACUTE LEUKAEMIA
     Dosage: 110MG PER DAY
     Route: 042
     Dates: start: 20130826, end: 20130830
  11. ARRANON [Suspect]
     Active Substance: NELARABINE
     Indication: T-CELL TYPE ACUTE LEUKAEMIA
     Dosage: 1600MG ALTERNATE DAYS
     Route: 042
     Dates: start: 20130402, end: 20130406
  12. ONCOVIN [Suspect]
     Active Substance: VINCRISTINE SULFATE
     Indication: PRODUCT USED FOR UNKNOWN INDICATION
     Route: 042
     Dates: start: 20130225, end: 20130225
  13. ONCOVIN [Suspect]
     Active Substance: VINCRISTINE SULFATE
     Indication: PRODUCT USED FOR UNKNOWN INDICATION
     Dosage: 2MG PER DAY
     Route: 042
     Dates: start: 20130628, end: 20130628
  14. ONCOVIN [Suspect]
     Active Substance: VINCRISTINE SULFATE
     Indication: PRODUCT USED FOR UNKNOWN INDICATION
     Dosage: 2MG PER DAY
     Route: 042
     Dates: start: 20130723, end: 20130723
  15. LEUKERIN [Concomitant]
     Active Substance: MERCAPTOPURINE
     Indication: T-CELL TYPE ACUTE LEUKAEMIA
     Dosage: 100MG PER DAY
     Dates: start: 20130409, end: 20130419
  16. ONCOVIN [Suspect]
     Active Substance: VINCRISTINE SULFATE
     Indication: PRODUCT USED FOR UNKNOWN INDICATION
     Route: 042
     Dates: start: 20130218, end: 20130218
  17. ONCOVIN [Suspect]
     Active Substance: VINCRISTINE SULFATE
     Indication: PRODUCT USED FOR UNKNOWN INDICATION
     Dosage: 2MG PER DAY
     Route: 042
     Dates: start: 20130614, end: 20130614

REACTIONS (10)
  - Sensory disturbance [Unknown]
  - Fall [Unknown]
  - Muscular weakness [Unknown]
  - Pain of skin [Recovered/Resolved]
  - Dizziness [Unknown]
  - Polyneuropathy [Recovered/Resolved with Sequelae]
  - Coordination abnormal [Unknown]
  - Skin burning sensation [Recovered/Resolved]
  - Hyperaesthesia [Recovered/Resolved]
  - Muscular weakness [Unknown]

NARRATIVE: CASE EVENT DATE: 201305
